FAERS Safety Report 13593928 (Version 1)
Quarter: 2017Q2

REPORT INFORMATION
  Report Type: Spontaneous
  Country: GB (occurrence: GB)
  Receive Date: 20170530
  Receipt Date: 20170530
  Transmission Date: 20170830
  Serious: Yes (Other)
  Sender: FDA-Public Use
  Company Number: GB-DRREDDYS-GER/UKI/17/0090974

PATIENT
  Age: 84 Year
  Sex: Male

DRUGS (2)
  1. AMLODIPINE 10 MG TABLETS, DR. REDDY^S [Suspect]
     Active Substance: AMLODIPINE BESYLATE
     Indication: CEREBROVASCULAR ACCIDENT
     Route: 048
     Dates: start: 201612
  2. AMLODIPINE 10 MG TABLETS, DR. REDDY^S [Suspect]
     Active Substance: AMLODIPINE BESYLATE
     Indication: PROPHYLAXIS

REACTIONS (1)
  - Type 2 diabetes mellitus [Not Recovered/Not Resolved]
